FAERS Safety Report 5809116-6 (Version None)
Quarter: 2008Q3

REPORT INFORMATION
  Report Type: 
  Country: None (occurrence: None)
  Receive Date: 20080714
  Receipt Date: 20080702
  Transmission Date: 20090109
  Serious: Yes (Hospitalization)
  Sender: FDA-Public Use
  Company Number: IT-PFIZER INC-2007005609

PATIENT
  Sex: Male

DRUGS (8)
  1. SU-011,248 [Suspect]
     Indication: RENAL CELL CARCINOMA
     Route: 048
     Dates: start: 20060904, end: 20061226
  2. RANITIDINE HCL [Concomitant]
     Route: 048
     Dates: start: 20060901, end: 20061230
  3. TORADOL [Concomitant]
     Route: 048
     Dates: start: 20060901, end: 20061230
  4. LAEVOLAC ^ROCHE^ [Concomitant]
     Route: 048
  5. PREDNISONE TAB [Concomitant]
     Route: 048
  6. OMEPRAZOLE [Concomitant]
     Route: 048
  7. GABAPENTIN [Concomitant]
     Route: 048
  8. ZOLPIDEM [Concomitant]
     Route: 048

REACTIONS (1)
  - LEUKOENCEPHALOPATHY [None]
